FAERS Safety Report 21843345 (Version 1)
Quarter: 2023Q1

REPORT INFORMATION
  Report Type: Spontaneous
  Country: US (occurrence: US)
  Receive Date: 20230110
  Receipt Date: 20230110
  Transmission Date: 20230418
  Serious: No
  Sender: FDA-Public Use
  Company Number: US-PARI RESPIRATORY EQUIPMENT, INC.-2022PAR00052

PATIENT
  Sex: Female

DRUGS (1)
  1. KITABIS PAK [Suspect]
     Active Substance: TOBRAMYCIN
     Dosage: UNK, ONCE
     Dates: start: 202208, end: 202208

REACTIONS (5)
  - Speech disorder [Recovered/Resolved]
  - Euphoric mood [Recovered/Resolved]
  - Dizziness [Recovered/Resolved]
  - Accidental exposure to product [Recovered/Resolved]
  - Suspected product contamination [Recovered/Resolved]

NARRATIVE: CASE EVENT DATE: 20220801
